FAERS Safety Report 9451036 (Version 2)
Quarter: 2013Q3

REPORT INFORMATION
  Report Type: Spontaneous
  Country: BR (occurrence: None)
  Receive Date: 20130807
  Receipt Date: 20130910
  Transmission Date: 20140515
  Serious: Yes (Other)
  Sender: FDA-Public Use
  Company Number: ENTC2013-0277

PATIENT
  Sex: Male

DRUGS (1)
  1. STALEVO (LEVODOPA, CARBIDOPA, ENTACAPONE) [Suspect]
     Dosage: 1 TABLET
     Dates: start: 2000

REACTIONS (2)
  - Dementia Alzheimer^s type [None]
  - Petit mal epilepsy [None]
